FAERS Safety Report 8011999-9 (Version None)
Quarter: 2011Q4

REPORT INFORMATION
  Report Type: 
  Country: None (occurrence: None)
  Receive Date: 20111228
  Receipt Date: 20111219
  Transmission Date: 20120403
  Serious: Yes (Hospitalization, Other)
  Sender: FDA-Public Use
  Company Number: JP-GLAXOSMITHKLINE-B0758891A

PATIENT
  Age: 5 Decade

DRUGS (1)
  1. AMERGE [Suspect]
     Indication: MIGRAINE
     Dosage: 7.5MG PER DAY
     Route: 048
     Dates: start: 20110706, end: 20110706

REACTIONS (8)
  - STRESS CARDIOMYOPATHY [None]
  - ELECTROCARDIOGRAM ST SEGMENT ELEVATION [None]
  - ACUTE CORONARY SYNDROME [None]
  - VASOSPASM [None]
  - TROPONIN T INCREASED [None]
  - CHEST PAIN [None]
  - OVERDOSE [None]
  - BRAIN NATRIURETIC PEPTIDE INCREASED [None]
